FAERS Safety Report 22331324 (Version 1)
Quarter: 2023Q2

REPORT INFORMATION
  Report Type: Spontaneous
  Country: US (occurrence: None)
  Receive Date: 20230515
  Receipt Date: 20230515
  Transmission Date: 20230721
  Serious: Yes (Disabling)
  Sender: FDA-Public Use
  Company Number: None

PATIENT
  Age: 68 Year
  Sex: Female
  Weight: 82.35 kg

DRUGS (11)
  1. XIIDRA [Suspect]
     Active Substance: LIFITEGRAST
     Indication: Dry eye
     Dosage: OTHER QUANTITY : 1 DROP(S);?FREQUENCY : TWICE A DAY;?
     Route: 047
     Dates: start: 20230329, end: 20230514
  2. NOVOLOG [Concomitant]
     Active Substance: INSULIN ASPART
  3. JARDIANCE [Concomitant]
     Active Substance: EMPAGLIFLOZIN
  4. OZEMPIC [Concomitant]
     Active Substance: SEMAGLUTIDE
  5. RAMIPRIL [Concomitant]
     Active Substance: RAMIPRIL
  6. VITAMIN C [Concomitant]
     Active Substance: ASCORBIC ACID
  7. VITAMIN D [Concomitant]
     Active Substance: VITAMIN D NOS
  8. MAGNESIUM [Concomitant]
     Active Substance: MAGNESIUM
  9. Phillips Probiotics [Concomitant]
  10. FLAXSEED [Concomitant]
     Active Substance: FLAX SEED
  11. Omega 3^s [Concomitant]

REACTIONS (7)
  - Headache [None]
  - Dizziness [None]
  - Sinus pain [None]
  - Vision blurred [None]
  - Insomnia [None]
  - Hypersensitivity [None]
  - Fatigue [None]

NARRATIVE: CASE EVENT DATE: 20230501
